FAERS Safety Report 7039468-3 (Version None)
Quarter: 2010Q4

REPORT INFORMATION
  Report Type: 
  Country: None (occurrence: None)
  Receive Date: 20101012
  Receipt Date: 20101006
  Transmission Date: 20110411
  Serious: Yes (Hospitalization, Other)
  Sender: FDA-Public Use
  Company Number: GR-ROCHE-732000

PATIENT
  Age: 29 Year
  Sex: Male

DRUGS (2)
  1. PEGASYS [Suspect]
     Indication: HEPATITIS C
     Route: 042
     Dates: start: 20100801, end: 20101001
  2. COPEGUS [Suspect]
     Indication: HEPATITIS C
     Route: 048
     Dates: start: 20100801, end: 20101001

REACTIONS (3)
  - BLOOD IMMUNOGLOBULIN E INCREASED [None]
  - PRURITUS GENERALISED [None]
  - RASH MACULAR [None]
